FAERS Safety Report 11748744 (Version 3)
Quarter: 2016Q1

REPORT INFORMATION
  Report Type: Spontaneous
  Country: PL (occurrence: PL)
  Receive Date: 20151118
  Receipt Date: 20160105
  Transmission Date: 20160525
  Serious: Yes (Hospitalization, Other)
  Sender: FDA-Public Use
  Company Number: PL-ROCHE-1661267

PATIENT
  Sex: Female
  Weight: 58.4 kg

DRUGS (7)
  1. CELLCEPT [Suspect]
     Active Substance: MYCOPHENOLATE MOFETIL\MYCOPHENOLATE MOFETIL HYDROCHLORIDE
     Dosage: DAILY DOSE: 1.5 G
     Route: 065
     Dates: start: 20150826, end: 20150901
  2. CYCLOSPORINE A [Concomitant]
     Active Substance: CYCLOSPORINE
     Indication: IMMUNOSUPPRESSION
  3. CELLCEPT [Suspect]
     Active Substance: MYCOPHENOLATE MOFETIL\MYCOPHENOLATE MOFETIL HYDROCHLORIDE
     Indication: IMMUNOSUPPRESSION
     Route: 065
     Dates: end: 20150825
  4. CONTROLOC [Concomitant]
     Active Substance: PANTOPRAZOLE SODIUM
     Dosage: FREQUENCY: 1-0-0
     Route: 048
  5. PREDNISONE. [Concomitant]
     Active Substance: PREDNISONE
  6. CELLCEPT [Suspect]
     Active Substance: MYCOPHENOLATE MOFETIL\MYCOPHENOLATE MOFETIL HYDROCHLORIDE
     Route: 048
  7. AXTIL [Concomitant]
     Indication: HYPERTENSION
     Route: 048

REACTIONS (10)
  - Escherichia urinary tract infection [Recovered/Resolved]
  - Body temperature increased [Unknown]
  - Aphthous ulcer [Unknown]
  - White blood cells urine [Unknown]
  - Leukopenia [Recovered/Resolved]
  - Urinary tract infection [Recovered/Resolved]
  - Night sweats [Unknown]
  - Asthenia [Unknown]
  - Exercise tolerance decreased [Unknown]
  - Complications of transplanted kidney [Unknown]
